FAERS Safety Report 4890092-8 (Version None)
Quarter: 2006Q1

REPORT INFORMATION
  Report Type: 
  Country: None (occurrence: None)
  Receive Date: 20060124
  Receipt Date: 20060110
  Transmission Date: 20060701
  Serious: Yes (Hospitalization)
  Sender: FDA-Public Use
  Company Number: FRWYE287210JAN06

PATIENT
  Age: 62 Year
  Sex: Female

DRUGS (7)
  1. ENBREL [Suspect]
     Indication: RHEUMATOID ARTHRITIS
     Route: 058
     Dates: start: 20040315, end: 20051016
  2. KETOPROFEN [Concomitant]
     Indication: RHEUMATOID ARTHRITIS
     Route: 048
     Dates: start: 20040815, end: 20051029
  3. ACTONEL [Concomitant]
     Route: 048
     Dates: end: 20051029
  4. ACTONEL [Concomitant]
     Dosage: UNKNOWN
     Dates: start: 20050101
  5. OMEPRAZOLE [Concomitant]
     Route: 048
  6. CALCIUM CARBONATE/COLECALCIFEROL [Concomitant]
     Dosage: UNKNOWN
     Route: 048
     Dates: end: 20051029
  7. CALCIUM CARBONATE/COLECALCIFEROL [Concomitant]
     Dosage: UNKNOWN
     Dates: start: 20050101

REACTIONS (3)
  - CONDITION AGGRAVATED [None]
  - NEUTROPENIA [None]
  - RHEUMATOID ARTHRITIS [None]
